FAERS Safety Report 10193935 (Version 1)
Quarter: 2014Q2

REPORT INFORMATION
  Report Type: Spontaneous
  Country: US (occurrence: US)
  Receive Date: 20140524
  Receipt Date: 20140524
  Transmission Date: 20141212
  Serious: No
  Sender: FDA-Public Use
  Company Number: US-SANOFI-AVENTIS-2013SA072993

PATIENT
  Sex: Female

DRUGS (2)
  1. LANTUS [Suspect]
     Route: 065
  2. HUMALOG [Suspect]
     Route: 065

REACTIONS (4)
  - Blood potassium increased [Unknown]
  - Blood sodium increased [Unknown]
  - Blood creatine increased [Unknown]
  - Renal disorder [Unknown]
